FAERS Safety Report 5449678-4 (Version None)
Quarter: 2007Q3

REPORT INFORMATION
  Report Type: 
  Country: None (occurrence: None)
  Receive Date: 20070910
  Receipt Date: 20070904
  Transmission Date: 20080115
  Serious: Yes (Death, Hospitalization)
  Sender: FDA-Public Use
  Company Number: 2007SP017684

PATIENT
  Age: 41 Year
  Sex: Female
  Weight: 56 kg

DRUGS (2)
  1. TEMODAL [Suspect]
     Indication: GLIOBLASTOMA MULTIFORME
     Dosage: 150 MG/M2; QD; PO, 200 MG/M2; QD;PO
     Route: 048
     Dates: start: 20061121, end: 20061125
  2. TEMODAL [Suspect]
     Indication: GLIOBLASTOMA MULTIFORME
     Dosage: 150 MG/M2; QD; PO, 200 MG/M2; QD;PO
     Route: 048
     Dates: start: 20061219, end: 20070414

REACTIONS (1)
  - HEPATITIS B [None]
